FAERS Safety Report 9232040 (Version 1)
Quarter: 2013Q2

REPORT INFORMATION
  Report Type: Spontaneous
  Country: US (occurrence: US)
  Receive Date: 20130415
  Receipt Date: 20130415
  Transmission Date: 20140414
  Serious: No
  Sender: FDA-Public Use
  Company Number: US-PFIZER INC-2013114711

PATIENT
  Sex: 0

DRUGS (2)
  1. EFFEXOR [Suspect]
     Dosage: 225 MG, 1X/DAY
  2. EFFEXOR [Suspect]
     Dosage: 150 MG, UNK

REACTIONS (1)
  - Withdrawal syndrome [Not Recovered/Not Resolved]
